FAERS Safety Report 9523313 (Version 1)
Quarter: 2013Q3

REPORT INFORMATION
  Report Type: Spontaneous
  Country: IT (occurrence: IT)
  Receive Date: 20130913
  Receipt Date: 20130913
  Transmission Date: 20140515
  Serious: Yes (Hospitalization)
  Sender: FDA-Public Use
  Company Number: IT-BRISTOL-MYERS SQUIBB COMPANY-19233964

PATIENT
  Age: 66 Year
  Sex: Male

DRUGS (4)
  1. COUMADIN TABS 5 MG [Suspect]
     Indication: ATRIAL FIBRILLATION
     Dosage: 1DF: 1UNIT?INTERRUPTED ON 16-AUG-2013
     Route: 048
     Dates: start: 20110801
  2. VASEXTEN [Concomitant]
     Dosage: CAPS
  3. SEQUACOR [Concomitant]
     Dosage: TABS
  4. CRESTOR [Concomitant]
     Dosage: TABS

REACTIONS (3)
  - Haematuria [Recovered/Resolved]
  - Urinary tract infection [Recovered/Resolved]
  - Overdose [Unknown]
